FAERS Safety Report 8358224-7 (Version None)
Quarter: 2012Q2

REPORT INFORMATION
  Report Type: 
  Country: None (occurrence: None)
  Receive Date: 20120514
  Receipt Date: 20120505
  Transmission Date: 20120825
  Serious: Yes (Hospitalization)
  Sender: FDA-Public Use
  Company Number: ES-GLAXOSMITHKLINE-B0794684A

PATIENT
  Sex: Male
  Weight: 87.8 kg

DRUGS (5)
  1. ATORVASTATIN CALCIUM [Concomitant]
  2. RABEPRAZOLE SODIUM [Concomitant]
  3. CARBAMAZEPINE [Concomitant]
  4. RETIGABINE [Suspect]
     Indication: PARTIAL SEIZURES
     Dosage: 200MG THREE TIMES PER DAY
     Route: 048
     Dates: start: 20060731
  5. LACOSAMIDE [Concomitant]

REACTIONS (4)
  - MYOCARDIAL ISCHAEMIA [None]
  - LYMPHOMA [None]
  - PULMONARY EMBOLISM [None]
  - ATRIAL FIBRILLATION [None]
